FAERS Safety Report 9438656 (Version 1)
Quarter: 2013Q3

REPORT INFORMATION
  Report Type: Spontaneous
  Country: US (occurrence: US)
  Receive Date: 20130802
  Receipt Date: 20130802
  Transmission Date: 20140515
  Serious: Yes (Other)
  Sender: FDA-Public Use
  Company Number: US-TEVA-422508USA

PATIENT
  Sex: 0
  Weight: 1.96 kg

DRUGS (4)
  1. DOXORUBICIN NOS [Suspect]
     Indication: BREAST CANCER STAGE I
     Route: 064
  2. PACLITAXEL [Suspect]
     Indication: BREAST CANCER STAGE I
     Route: 064
  3. FLUOROURACIL [Suspect]
     Indication: BREAST CANCER STAGE I
     Route: 064
  4. CYCLOPHOSPHAMIDE [Suspect]
     Indication: BREAST CANCER STAGE I
     Route: 064

REACTIONS (2)
  - Foetal growth restriction [Unknown]
  - Foetal exposure during pregnancy [Recovered/Resolved]
